FAERS Safety Report 21293220 (Version 1)
Quarter: 2022Q3

REPORT INFORMATION
  Report Type: Report from Study
  Country: US (occurrence: US)
  Receive Date: 20220905
  Receipt Date: 20220905
  Transmission Date: 20221027
  Serious: No
  Sender: FDA-Public Use
  Company Number: US-NOVARTISTESTPH-NVSC2022US196135

PATIENT
  Age: 17 Year
  Sex: Female

DRUGS (1)
  1. VIJOICE [Suspect]
     Active Substance: ALPELISIB
     Indication: Product used for unknown indication
     Dosage: 250 MG, QD
     Route: 048
     Dates: start: 202003

REACTIONS (5)
  - Skin striae [Unknown]
  - Spinal pain [Unknown]
  - Back pain [Unknown]
  - Neck pain [Unknown]
  - Pain in extremity [Unknown]

NARRATIVE: CASE EVENT DATE: 20200301
